FAERS Safety Report 17902485 (Version 2)
Quarter: 2020Q3

REPORT INFORMATION
  Report Type: Spontaneous
  Country: CZ (occurrence: CZ)
  Receive Date: 20200616
  Receipt Date: 20200727
  Transmission Date: 20201103
  Serious: Yes (Other)
  Sender: FDA-Public Use
  Company Number: CZ-SA-2020SA150028

PATIENT

DRUGS (6)
  1. OXALIPLATIN. [Suspect]
     Active Substance: OXALIPLATIN
     Indication: COLON CANCER STAGE II
     Dosage: UNK
     Route: 065
     Dates: start: 201810
  2. FOLINIC ACID [Suspect]
     Active Substance: LEUCOVORIN
     Indication: COLON CANCER STAGE II
     Dosage: 12 CYCLICAL
     Route: 065
     Dates: start: 201905, end: 201909
  3. IRINOTECAN [Suspect]
     Active Substance: IRINOTECAN
     Indication: COLORECTAL CANCER STAGE II
     Dosage: CYCLICAL
     Dates: start: 201905, end: 201909
  4. VECTIBIX [Suspect]
     Active Substance: PANITUMUMAB
     Indication: COLON CANCER STAGE II
     Dosage: UNTIL APR?2019, 6 CYCLES MONOTHERAPY
     Route: 065
     Dates: start: 201810, end: 201904
  5. 5?FU [FLUOROURACIL] [Suspect]
     Active Substance: FLUOROURACIL
     Indication: COLON CANCER STAGE II
     Dosage: 12 CYCLICAL
     Route: 065
     Dates: start: 201905, end: 201909
  6. ZALTRAP [Suspect]
     Active Substance: ZIV-AFLIBERCEPT
     Indication: COLON CANCER STAGE II
     Dosage: MONOTHERAPY FROM CYCLE 13 ONWARDS
     Dates: start: 201905

REACTIONS (8)
  - Dyspepsia [Recovered/Resolved]
  - Skin toxicity [Recovering/Resolving]
  - Therapeutic product effect incomplete [Unknown]
  - Gastrointestinal toxicity [Unknown]
  - Haematotoxicity [Unknown]
  - Diarrhoea [Recovered/Resolved]
  - Palmar-plantar erythrodysaesthesia syndrome [Recovered/Resolved]
  - Colorectal cancer metastatic [Unknown]

NARRATIVE: CASE EVENT DATE: 2019
